FAERS Safety Report 14648306 (Version 1)
Quarter: 2018Q1

REPORT INFORMATION
  Report Type: Spontaneous
  Country: GB (occurrence: GB)
  Receive Date: 20180316
  Receipt Date: 20180316
  Transmission Date: 20180509
  Serious: Yes (Other)
  Sender: FDA-Public Use
  Company Number: GB-PFIZER INC-2018106966

PATIENT
  Age: 31 Year
  Sex: Male
  Weight: 75 kg

DRUGS (6)
  1. IBUPROFEN. [Suspect]
     Active Substance: IBUPROFEN
     Dosage: UNK
     Dates: start: 20171102
  2. PREGABALIN. [Concomitant]
     Active Substance: PREGABALIN
     Dosage: 1 DF, UNK (1 CAPSULE)
     Dates: start: 20170816
  3. MIRTAZAPINE. [Concomitant]
     Active Substance: MIRTAZAPINE
     Dosage: 1 DF, UNK
  4. SALBUTAMOL [Concomitant]
     Active Substance: ALBUTEROL
     Dosage: AS NEEDED AS 1-2 PUFFS
     Dates: start: 20171102
  5. QVAR [Concomitant]
     Active Substance: BECLOMETHASONE DIPROPIONATE
     Dosage: 2 DF, 1X/DAY PUFF
     Dates: start: 20171102
  6. PARACETAMOL [Concomitant]
     Active Substance: ACETAMINOPHEN
     Dosage: 1 OR 2 TABLETS UP TO 4 TIMES/DAY
     Dates: start: 20170913, end: 20170915

REACTIONS (2)
  - Dyspnoea [Recovered/Resolved]
  - Rash generalised [Recovered/Resolved]

NARRATIVE: CASE EVENT DATE: 20171121
